FAERS Safety Report 22273263 (Version 2)
Quarter: 2023Q2

REPORT INFORMATION
  Report Type: Other
  Country: CA (occurrence: CA)
  Receive Date: 20230502
  Receipt Date: 20230502
  Transmission Date: 20230721
  Serious: Yes (Hospitalization, Other)
  Sender: FDA-Public Use
  Company Number: CA-PFIZER INC-202300172156

PATIENT
  Weight: 2 kg

DRUGS (4)
  1. CALCIUM CHLORIDE [Suspect]
     Active Substance: CALCIUM CHLORIDE
     Indication: Supplementation therapy
     Dosage: UNK
     Route: 064
  2. CALCIUM CHLORIDE [Suspect]
     Active Substance: CALCIUM CHLORIDE
     Dosage: UNK
     Route: 064
  3. CALCITRIOL [Suspect]
     Active Substance: CALCITRIOL
     Indication: Supplementation therapy
     Dosage: UNK
     Route: 064
  4. MAGNESIUM [Suspect]
     Active Substance: MAGNESIUM
     Dosage: UNK
     Route: 064

REACTIONS (5)
  - Foetal exposure during pregnancy [Unknown]
  - Exposure via breast milk [Unknown]
  - Premature baby [Unknown]
  - Foetal biophysical profile score abnormal [Unknown]
  - Neonatal hypocalcaemia [Unknown]
